FAERS Safety Report 9209461 (Version 2)
Quarter: 2013Q3

REPORT INFORMATION
  Report Type: Spontaneous
  Country: FR (occurrence: FR)
  Receive Date: 20130404
  Receipt Date: 20130906
  Transmission Date: 20140515
  Serious: Yes (Other)
  Sender: FDA-Public Use
  Company Number: FR-JNJFOC-20130317284

PATIENT
  Sex: Male

DRUGS (7)
  1. XARELTO [Suspect]
     Indication: CEREBROVASCULAR ACCIDENT PROPHYLAXIS
     Route: 048
     Dates: start: 20130214, end: 20130321
  2. XARELTO [Suspect]
     Indication: ATRIAL FIBRILLATION
     Route: 048
     Dates: start: 20130214, end: 20130321
  3. DIFLUCAN [Concomitant]
     Route: 065
  4. PRITOR [Concomitant]
     Route: 065
  5. FLECAINE [Concomitant]
     Route: 065
  6. TEMESTA [Concomitant]
     Route: 065
  7. DOLIPRANE [Concomitant]
     Route: 065

REACTIONS (3)
  - Hepatic enzyme increased [Unknown]
  - Abdominal pain [Unknown]
  - Flatulence [Unknown]
